FAERS Safety Report 5333709-6 (Version None)
Quarter: 2007Q2

REPORT INFORMATION
  Report Type: 
  Country: None (occurrence: None)
  Receive Date: 20070524
  Receipt Date: 20070521
  Transmission Date: 20071010
  Serious: Yes (Hospitalization)
  Sender: FDA-Public Use
  Company Number: B0471392A

PATIENT
  Age: 70 Year
  Sex: Female

DRUGS (6)
  1. ALKERAN [Suspect]
     Indication: DRUG USE FOR UNKNOWN INDICATION
     Route: 048
     Dates: end: 20070429
  2. RANIMUSTINE [Concomitant]
     Route: 042
     Dates: start: 20060101
  3. VINDESINE SULFATE [Concomitant]
     Route: 042
     Dates: start: 20060101
  4. PREDNISOLONE [Concomitant]
     Route: 048
  5. ZOMETA [Concomitant]
     Route: 042
  6. POTASSIUM REPLACEMENT [Concomitant]

REACTIONS (3)
  - BLOOD POTASSIUM DECREASED [None]
  - MUSCULAR WEAKNESS [None]
  - WHITE BLOOD CELL COUNT DECREASED [None]
